FAERS Safety Report 11972628 (Version 3)
Quarter: 2016Q3

REPORT INFORMATION
  Report Type: Report from Study
  Country: US (occurrence: US)
  Receive Date: 20160128
  Receipt Date: 20160823
  Transmission Date: 20161109
  Serious: Yes (Hospitalization)
  Sender: FDA-Public Use
  Company Number: US-ACTELION-A-US2016-130480

PATIENT
  Age: 4 Year
  Sex: Male

DRUGS (2)
  1. TRACLEER [Suspect]
     Active Substance: BOSENTAN
     Dosage: 25.6 MG, BID
     Route: 048
  2. TRACLEER [Suspect]
     Active Substance: BOSENTAN
     Indication: PULMONARY HYPERTENSION
     Dosage: UNK, BID
     Route: 048

REACTIONS (8)
  - Thrombocytopenia [Recovered/Resolved]
  - Respiratory syncytial virus infection [Unknown]
  - Hypokalaemia [Recovered/Resolved]
  - Heart disease congenital [Unknown]
  - Blood potassium decreased [Recovered/Resolved]
  - Pneumonia [Recovered/Resolved]
  - Drug administration error [Unknown]
  - Alopecia [Unknown]
